FAERS Safety Report 17352280 (Version 1)
Quarter: 2020Q1

REPORT INFORMATION
  Report Type: Spontaneous
  Country: US (occurrence: US)
  Receive Date: 20200130
  Receipt Date: 20200130
  Transmission Date: 20200409
  Serious: No
  Sender: FDA-Public Use
  Company Number: US-AMGEN-USASP2020013018

PATIENT
  Age: 74 Year
  Sex: Female

DRUGS (3)
  1. CARVEDIL [Concomitant]
     Active Substance: CARVEDILOL
     Indication: BLOOD PRESSURE ABNORMAL
  2. ARANESP [Suspect]
     Active Substance: DARBEPOETIN ALFA
     Indication: NEPHROGENIC ANAEMIA
     Dosage: 60 MILLIGRAM
     Route: 065
  3. ARANESP [Suspect]
     Active Substance: DARBEPOETIN ALFA
     Dosage: 80 MILLIGRAM
     Route: 065

REACTIONS (3)
  - Gastrointestinal ulcer [Unknown]
  - Diarrhoea [Unknown]
  - Headache [Unknown]
